FAERS Safety Report 21217646 (Version 1)
Quarter: 2022Q3

REPORT INFORMATION
  Report Type: Spontaneous
  Country: SG (occurrence: None)
  Receive Date: 20220816
  Receipt Date: 20220816
  Transmission Date: 20221026
  Serious: Yes (Death, Other)
  Sender: FDA-Public Use
  Company Number: SG-ROCHE-3154563

PATIENT
  Age: 53 Year
  Sex: Male

DRUGS (1)
  1. AVASTIN [Suspect]
     Active Substance: BEVACIZUMAB
     Indication: Neoplasm
     Route: 065

REACTIONS (5)
  - Death [Fatal]
  - Renal impairment [Unknown]
  - Defaecation disorder [Unknown]
  - Vomiting [Unknown]
  - Dysuria [Unknown]

NARRATIVE: CASE EVENT DATE: 20220517
